FAERS Safety Report 6039017-2 (Version None)
Quarter: 2009Q1

REPORT INFORMATION
  Report Type: 
  Country: None (occurrence: None)
  Receive Date: 20090115
  Receipt Date: 20090109
  Transmission Date: 20090719
  Serious: Yes (Life-Threatening, Other)
  Sender: FDA-Public Use
  Company Number: DE-BRISTOL-MYERS SQUIBB COMPANY-14467187

PATIENT
  Age: 88 Year
  Sex: Female
  Weight: 58 kg

DRUGS (5)
  1. METFORMIN HCL [Interacting]
     Indication: TYPE 2 DIABETES MELLITUS
     Route: 048
  2. LANTUS [Suspect]
     Indication: TYPE 2 DIABETES MELLITUS
     Dosage: FORMULATION: INJ
     Route: 058
     Dates: start: 20050101, end: 20080723
  3. NOVONORM [Suspect]
     Indication: TYPE 2 DIABETES MELLITUS
     Dosage: FORMULATION: TABS DOSE 8 MILLIGRAM
     Route: 048
     Dates: end: 20080724
  4. GLUCOBAY [Interacting]
     Indication: TYPE 2 DIABETES MELLITUS
     Dosage: FORMULATION: TABS
     Route: 048
     Dates: end: 20080724
  5. DIOVAN HCT [Concomitant]
     Indication: HYPERTENSION
     Dosage: 80MG VALSARTAN/12.5MG HCTZ
     Route: 048

REACTIONS (2)
  - DRUG INTERACTION [None]
  - HYPOGLYCAEMIA [None]
